FAERS Safety Report 12762834 (Version 1)
Quarter: 2016Q3

REPORT INFORMATION
  Report Type: Spontaneous
  Country: US (occurrence: US)
  Receive Date: 20160916
  Receipt Date: 20160916
  Transmission Date: 20161109
  Serious: No
  Sender: FDA-Public Use
  Company Number: None

PATIENT
  Age: 29 Year
  Sex: Female

DRUGS (1)
  1. HARVONI [Suspect]
     Active Substance: LEDIPASVIR\SOFOSBUVIR
     Dosage: HARVONI TAB - 90-400MG QD PO
     Route: 048

REACTIONS (2)
  - Confusional state [None]
  - Poisoning [None]

NARRATIVE: CASE EVENT DATE: 20160903
